FAERS Safety Report 24783002 (Version 1)
Quarter: 2024Q4

REPORT INFORMATION
  Report Type: Spontaneous
  Country: US (occurrence: US)
  Receive Date: 20241227
  Receipt Date: 20241227
  Transmission Date: 20250115
  Serious: No
  Sender: ABBVIE
  Company Number: US-ABBVIE-6065013

PATIENT
  Sex: Female

DRUGS (1)
  1. ARMOUR THYROID [Suspect]
     Active Substance: THYROID, PORCINE
     Indication: Cardiac disorder
     Route: 065

REACTIONS (3)
  - Poor quality product administered [Unknown]
  - Extrasystoles [Unknown]
  - Product container seal issue [Unknown]
